FAERS Safety Report 7243797-8 (Version None)
Quarter: 2011Q1

REPORT INFORMATION
  Report Type: 
  Country: None (occurrence: None)
  Receive Date: 20110125
  Receipt Date: 20110110
  Transmission Date: 20110831
  Serious: Yes (Death)
  Sender: FDA-Public Use
  Company Number: PHHY2011GR05021

PATIENT
  Age: 22 Year
  Sex: Male

DRUGS (3)
  1. PACLITAXEL [Suspect]
  2. TOPOTECAN [Concomitant]
  3. CISPLATIN [Suspect]

REACTIONS (4)
  - GASTROINTESTINAL OBSTRUCTION [None]
  - ABDOMINAL MASS [None]
  - RENAL IMPAIRMENT [None]
  - DISEASE RECURRENCE [None]
